FAERS Safety Report 4446265-1 (Version None)
Quarter: 2004Q3

REPORT INFORMATION
  Report Type: 
  Country: None (occurrence: None)
  Receive Date: 20040907
  Receipt Date: 20040823
  Transmission Date: 20050211
  Serious: Yes (Death)
  Sender: FDA-Public Use
  Company Number: 04P-163-0271210-00

PATIENT
  Sex: Female
  Weight: 63.5036 kg

DRUGS (3)
  1. SYNTHROID [Suspect]
     Dosage: 50 MCG, 1 IN 1 D, PER ORAL
     Route: 048
  2. MEDICATION FOR VOMITING [Concomitant]
  3. DIARRHEA MEDICATION [Concomitant]

REACTIONS (1)
  - CARCINOMA [None]
